FAERS Safety Report 9871880 (Version 1)
Quarter: 2014Q1

REPORT INFORMATION
  Report Type: Spontaneous
  Country: US (occurrence: US)
  Receive Date: 20140205
  Receipt Date: 20140205
  Transmission Date: 20141002
  Serious: No
  Sender: FDA-Public Use
  Company Number: US-ALLERGAN-1305597US

PATIENT
  Age: 67 Year
  Sex: Female

DRUGS (8)
  1. BOTOX COSMETIC [Suspect]
     Indication: SKIN WRINKLING
     Dosage: UNK, SINGLE
     Route: 030
  2. BOTOX COSMETIC [Suspect]
     Dosage: UNK, SINGLE
     Route: 030
  3. CITALOPRAM [Concomitant]
     Indication: PRODUCT USED FOR UNKNOWN INDICATION
     Dosage: 20 MG, UNK
  4. DICLOFENAC [Concomitant]
     Indication: AUTOIMMUNE DISORDER
     Dosage: UNK UNK, Q12H
  5. CALCIUM [Concomitant]
     Indication: PRODUCT USED FOR UNKNOWN INDICATION
  6. MAGNESIUM [Concomitant]
     Indication: PRODUCT USED FOR UNKNOWN INDICATION
  7. HORMONE PATCH NOS [Concomitant]
     Indication: PRODUCT USED FOR UNKNOWN INDICATION
  8. LETHICIN [Concomitant]
     Indication: PRODUCT USED FOR UNKNOWN INDICATION

REACTIONS (9)
  - Plastic surgery [Unknown]
  - Chromatopsia [Unknown]
  - Visual impairment [Unknown]
  - Hallucination, visual [Unknown]
  - Hallucination, visual [Unknown]
  - Photophobia [Unknown]
  - Glassy eyes [Unknown]
  - Ocular hyperaemia [Unknown]
  - Headache [Recovered/Resolved]
